FAERS Safety Report 18670190 (Version 3)
Quarter: 2021Q2

REPORT INFORMATION
  Report Type: Spontaneous
  Country: IN (occurrence: IN)
  Receive Date: 20201228
  Receipt Date: 20210427
  Transmission Date: 20210717
  Serious: Yes (Other)
  Sender: FDA-Public Use
  Company Number: IN-PFIZER INC-2020028242

PATIENT
  Age: 80 Year
  Sex: Male

DRUGS (3)
  1. INLYTA [Suspect]
     Active Substance: AXITINIB
     Indication: METASTATIC RENAL CELL CARCINOMA
     Dosage: 5 MG, 2X/DAY
     Route: 048
     Dates: start: 20191102
  2. BIFILAC [BACILLUS COAGULANS] [Concomitant]
     Indication: DIARRHOEA
     Dosage: 2 DF, 2X/DAY (2?0?2)
  3. APIXABAN [Concomitant]
     Active Substance: APIXABAN
     Dosage: 2.5 MG, 2X/DAY (1?0?1)

REACTIONS (5)
  - Hypertension [Unknown]
  - Oxygen saturation decreased [Unknown]
  - Diarrhoea [Unknown]
  - Diabetes mellitus [Unknown]
  - Weight increased [Unknown]
